FAERS Safety Report 8755910 (Version 1)
Quarter: 2012Q4

REPORT INFORMATION
  Report Type: 
  Country: GB (occurrence: GB)
  Receive Date: 20120828
  Receipt Date: 20120828
  Transmission Date: 20130627
  Serious: Yes (Other)
  Sender: FDA-Public Use
  Company Number: GB-TEVA-354976ISR

PATIENT
  Sex: Female

DRUGS (3)
  1. WARFARIN [Suspect]
     Indication: ANTICOAGULANT THERAPY
     Route: 065
  2. ASPIRIN [Concomitant]
     Dosage: low dose
     Route: 065
  3. LOW MULECULAR WEIGHT HEPARIN (LMWH) NOS [Concomitant]
     Dosage: 2 mg/kg Daily;

REACTIONS (1)
  - Left ventricular dysfunction [Recovering/Resolving]
